FAERS Safety Report 5894928-3 (Version None)
Quarter: 2008Q3

REPORT INFORMATION
  Report Type: 
  Country: None (occurrence: None)
  Receive Date: 20080924
  Receipt Date: 20080917
  Transmission Date: 20090109
  Serious: Yes (Other)
  Sender: FDA-Public Use
  Company Number: PHHY2008FI18938

PATIENT
  Sex: Male

DRUGS (3)
  1. EXELON [Suspect]
     Indication: DEMENTIA WITH LEWY BODIES
     Dosage: 4.6MG/24HOUR
     Route: 062
  2. EXELON [Suspect]
     Dosage: 9.5MG/24HOUR
  3. MEMANTINE HCL [Concomitant]

REACTIONS (11)
  - APPLICATION SITE DERMATITIS [None]
  - APPLICATION SITE PRURITUS [None]
  - APPLICATION SITE RASH [None]
  - DERMATITIS ATOPIC [None]
  - FATIGUE [None]
  - MUSCULOSKELETAL STIFFNESS [None]
  - NAUSEA [None]
  - RASH GENERALISED [None]
  - RASH PAPULAR [None]
  - SKIN EXFOLIATION [None]
  - URTICARIA [None]
